FAERS Safety Report 20511821 (Version 4)
Quarter: 2022Q2

REPORT INFORMATION
  Report Type: Spontaneous
  Country: JP (occurrence: JP)
  Receive Date: 20220224
  Receipt Date: 20220531
  Transmission Date: 20220721
  Serious: No
  Sender: FDA-Public Use
  Company Number: JP-GLAXOSMITHKLINE-JP2022JPN029971

PATIENT

DRUGS (3)
  1. SOTROVIMAB [Suspect]
     Active Substance: SOTROVIMAB
     Indication: COVID-19
     Dosage: 500 MG PER DAY
     Route: 041
     Dates: start: 20220216, end: 20220216
  2. CALCIUM CHLORIDE\POTASSIUM CHLORIDE\SODIUM ACETATE\SODIUM CHLORIDE [Suspect]
     Active Substance: CALCIUM CHLORIDE\POTASSIUM CHLORIDE\SODIUM ACETATE\SODIUM CHLORIDE
     Indication: COVID-19
     Dosage: 500 ML PER DAY
     Route: 042
     Dates: start: 20220216, end: 20220218
  3. CALONAL [Suspect]
     Active Substance: ACETAMINOPHEN
     Indication: COVID-19
     Dosage: 1000 MG PER DAY
     Route: 048
     Dates: start: 20220216, end: 20220216

REACTIONS (2)
  - Exposure during pregnancy [Unknown]
  - Live birth [Unknown]
